FAERS Safety Report 20831458 (Version 2)
Quarter: 2025Q2

REPORT INFORMATION
  Report Type: Spontaneous
  Country: US (occurrence: US)
  Receive Date: 20220516
  Receipt Date: 20250611
  Transmission Date: 20250717
  Serious: Yes (Other)
  Sender: AUROBINDO
  Company Number: US-AUROBINDO-AUR-APL-2022-017296

PATIENT
  Age: 56 Year
  Sex: Female

DRUGS (1)
  1. PREDNISONE [Suspect]
     Active Substance: PREDNISONE
     Indication: Sarcoidosis
     Dosage: 10 MILLIGRAM, ONCE A DAY
     Route: 065

REACTIONS (1)
  - Cataract [Unknown]
